FAERS Safety Report 8798608 (Version 1)
Quarter: 2012Q4

REPORT INFORMATION
  Report Type: Spontaneous
  Country: US (occurrence: None)
  Receive Date: 20120914
  Receipt Date: 20120914
  Transmission Date: 20130627
  Serious: Yes (Disabling)
  Sender: FDA-Public Use
  Company Number: DSA_59441_2012

PATIENT
  Sex: Female

DRUGS (11)
  1. XENAZINE 25 MG (NOT SPECIFIED) [Suspect]
     Route: 048
  2. XENAZINE 25 MG (NOT SPECIFIED) [Suspect]
     Route: 048
  3. XENAZINE 25 MG (NOT SPECIFIED) [Suspect]
     Dosage: 37.5 mg in the morning, 25 mg at noon, and 25 mg at night Oral), (tapered dose Oral)
     Route: 048
  4. XENAZINE 25 MG (NOT SPECIFIED) [Suspect]
     Dates: start: 20120412
  5. GABAPENTIN [Concomitant]
  6. ALPRAZOLAM [Concomitant]
  7. LEXAPRO [Concomitant]
  8. AMANTADINE [Concomitant]
  9. KRILL OIL [Concomitant]
  10. COENZYME Q10 [Concomitant]
  11. ASTAXANTHIN [Concomitant]

REACTIONS (5)
  - Depression [None]
  - Feeling of despair [None]
  - Insomnia [None]
  - Gait disturbance [None]
  - Dyskinesia [None]
